FAERS Safety Report 9564608 (Version 2)
Quarter: 2013Q4

REPORT INFORMATION
  Report Type: Spontaneous
  Country: US (occurrence: US)
  Receive Date: 20130930
  Receipt Date: 20131018
  Transmission Date: 20140711
  Serious: Yes (Other)
  Sender: FDA-Public Use
  Company Number: US-PFIZER INC-2013275994

PATIENT
  Age: 54 Year
  Sex: Female
  Weight: 147 kg

DRUGS (16)
  1. SUTENT [Suspect]
     Indication: RENAL CANCER
     Dosage: 37.5MG FOR 14DAYS THEN 25MG FOR 14DAYS
     Route: 048
     Dates: start: 20130508, end: 201309
  2. SUTENT [Suspect]
     Dosage: 37.5MG FOR 14DAYS THEN 25MG FOR 14DAYS
     Route: 048
     Dates: start: 20130508, end: 201309
  3. SUTENT [Suspect]
     Dosage: 12.5 MG, 1X/DAY (TAKE 1 PO DAILY)
     Route: 048
  4. ACETYLCYSTEINE [Concomitant]
     Dosage: 3 ML, 2X/DAY
     Route: 055
  5. ALBUTEROL SULFATE [Concomitant]
     Indication: COUGH
     Dosage: 90 MCG HFA AEROSOL, (2 LNH), Q4H PRN
     Route: 055
  6. ALLOPURINOL [Concomitant]
     Dosage: 300 MG, 1X/DAY
     Route: 048
  7. ASPIRIN [Concomitant]
     Dosage: 81 MG, 1X/DAY
     Route: 048
  8. BYETTA [Concomitant]
     Dosage: 10 UG, 2X/DAY
     Route: 058
     Dates: start: 201103
  9. EMLA [Concomitant]
     Dosage: 1 APPLICATION TOPICAL AS DIRECTED
     Route: 061
  10. FUROSEMIDE [Concomitant]
     Dosage: 20 MG, UNK (AS DIRECTED)
     Route: 048
  11. LEVOTHYROXINE SODIUM [Concomitant]
     Dosage: 137 UG, 1X/DAY
     Route: 048
  12. METOPROLOL TARTRATE [Concomitant]
     Dosage: 50MG TABLET EVERY MORNING AND ONE 25MG TABLET EVERY EVENING
     Route: 048
  13. PAROXETINE HYDROCHLORIDE [Concomitant]
     Dosage: 20 MG, 1X/DAY
     Route: 048
  14. PIOGLITAZONE HYDROCHLORIDE [Concomitant]
     Dosage: 45 MG, UNK (AS DIRECTED)
     Route: 048
  15. SIMVASTATIN [Concomitant]
     Dosage: 80 MG, 1X/DAY
     Route: 048
  16. LISINOPRIL [Concomitant]
     Dosage: 10 MG, 1X/DAY
     Route: 048

REACTIONS (6)
  - Palmar-plantar erythrodysaesthesia syndrome [Unknown]
  - Mucosal inflammation [Unknown]
  - Neutropenia [Unknown]
  - Thrombocytopenia [Unknown]
  - Disease progression [Unknown]
  - Renal cancer [Unknown]
